FAERS Safety Report 7807632-9 (Version None)
Quarter: 2011Q4

REPORT INFORMATION
  Report Type: 
  Country: None (occurrence: None)
  Receive Date: 20111011
  Receipt Date: 20111005
  Transmission Date: 20120403
  Serious: Yes (Death, Other)
  Sender: FDA-Public Use
  Company Number: JP-PFIZER INC-2010053710

PATIENT
  Age: 78 Year
  Sex: Male
  Weight: 60.2 kg

DRUGS (11)
  1. OLMESARTAN MEDOXOMIL [Concomitant]
     Indication: HYPERTENSION
     Dosage: UNK
     Route: 048
     Dates: end: 20100419
  2. CALBLOCK [Concomitant]
     Indication: HYPERTENSION
     Dosage: UNK
     Route: 048
     Dates: end: 20100419
  3. INSULIN DETEMIR [Concomitant]
     Route: 058
  4. ASPIRIN [Concomitant]
     Indication: CEREBRAL INFARCTION
     Dosage: UNK
     Route: 048
     Dates: end: 20100419
  5. LANSOPRAZOLE [Concomitant]
     Indication: GASTRIC ULCER
     Dosage: UNK
     Route: 048
     Dates: end: 20100419
  6. GLUFAST [Concomitant]
     Route: 048
  7. AZULFIDINE [Suspect]
     Indication: RHEUMATOID ARTHRITIS
     Dosage: 500 MG DAILY
     Route: 048
     Dates: start: 20100304
  8. MONTELUKAST SODIUM [Concomitant]
     Indication: ASTHMA
     Dosage: UNK
     Route: 048
     Dates: end: 20100419
  9. AZULFIDINE [Suspect]
     Dosage: 500 MG, 2X/DAY
     Dates: start: 20100311, end: 20100419
  10. ALENDRONATE SODIUM [Concomitant]
     Indication: OSTEOPOROSIS
     Dosage: UNK
     Route: 048
     Dates: start: 20100129, end: 20100419
  11. PREDNISOLONE [Concomitant]
     Indication: RHEUMATOID ARTHRITIS
     Dosage: UNK
     Route: 048
     Dates: start: 20100129, end: 20100422

REACTIONS (9)
  - OROPHARYNGEAL PAIN [None]
  - CHEST X-RAY ABNORMAL [None]
  - AGRANULOCYTOSIS [None]
  - DISSEMINATED INTRAVASCULAR COAGULATION [None]
  - LEUKOPENIA [None]
  - CORYNEBACTERIUM TEST POSITIVE [None]
  - PYREXIA [None]
  - SEPTIC SHOCK [None]
  - SEPSIS [None]
